FAERS Safety Report 17797445 (Version 1)
Quarter: 2020Q2

REPORT INFORMATION
  Report Type: Spontaneous
  Country: US (occurrence: US)
  Receive Date: 20200518
  Receipt Date: 20200518
  Transmission Date: 20200714
  Serious: Yes (Hospitalization)
  Sender: FDA-Public Use
  Company Number: US-SA-2020SA026940

PATIENT
  Age: 31 Year
  Sex: Female

DRUGS (4)
  1. DUPIXENT [Suspect]
     Active Substance: DUPILUMAB
     Indication: DERMATITIS
     Dosage: 300 MG, QOW
     Route: 058
  2. BENLYSTA [Suspect]
     Active Substance: BELIMUMAB
  3. DUPIXENT [Suspect]
     Active Substance: DUPILUMAB
     Indication: DERMATITIS ATOPIC
     Dosage: 300 MG, QOW
     Route: 058
     Dates: start: 20190822
  4. GENGRAF [Concomitant]
     Active Substance: CYCLOSPORINE

REACTIONS (4)
  - Rash [Unknown]
  - Hospitalisation [Unknown]
  - Cough [Unknown]
  - Swelling face [Unknown]
